FAERS Safety Report 9069004 (Version 3)
Quarter: 2013Q2

REPORT INFORMATION
  Report Type: Report from Study
  Country: US (occurrence: US)
  Receive Date: 20130128
  Receipt Date: 20130422
  Transmission Date: 20140414
  Serious: Yes (Death, Other)
  Sender: FDA-Public Use
  Company Number: PHEH2013US002077

PATIENT
  Age: 82 Year
  Sex: Female
  Weight: 68.58 kg

DRUGS (12)
  1. EXELON PATCH [Suspect]
     Indication: DEMENTIA WITH LEWY BODIES
     Dosage: 13.3 MG, DAILY
     Route: 062
     Dates: start: 20100624
  2. CALCIUM [Concomitant]
     Dosage: 1 DF, QD
     Route: 048
  3. SINEMET [Concomitant]
     Dosage: 1.5 DF FOUR TIMES A DAY, UNK
     Dates: start: 20091019
  4. LORTAB [Concomitant]
     Indication: PAIN
     Dosage: 1 DF EVERY 4 TO 6 HOURS, UNK
     Route: 048
     Dates: start: 200812
  5. IMODIUM [Concomitant]
  6. OMEPRAZOLE [Concomitant]
     Dosage: 1 DF, QD
     Route: 048
  7. PREDNISONE [Concomitant]
     Dosage: 1 DF, UNK
     Route: 048
     Dates: start: 201106
  8. SEROQUEL [Concomitant]
     Dosage: UNK
     Dates: start: 201108
  9. SIMETHICON [Concomitant]
     Dosage: 1 DF AS NEEDED, UNK
     Route: 048
  10. VITAMIIN C [Concomitant]
     Dosage: 500 MG, QD
     Route: 048
  11. VITAMIN D3 [Concomitant]
     Dosage: 2000 U, UNK
     Route: 048
  12. VITAMIN E [Concomitant]
     Dosage: 400 U, QD
     Route: 048

REACTIONS (17)
  - Dementia Alzheimer^s type [Fatal]
  - Cognitive disorder [Unknown]
  - Left atrial dilatation [Unknown]
  - Electrocardiogram T wave abnormal [Unknown]
  - Ischaemia [Unknown]
  - Haemoglobin decreased [Unknown]
  - Platelet count decreased [Unknown]
  - General physical health deterioration [Unknown]
  - Lymphocyte count decreased [Unknown]
  - Blood glucose increased [Unknown]
  - Protein total increased [Unknown]
  - Urine oxalate [Unknown]
  - Red blood cell count decreased [Unknown]
  - Haematocrit decreased [Unknown]
  - Red cell distribution width decreased [Unknown]
  - Monocyte count increased [Unknown]
  - Blood alkaline phosphatase increased [Unknown]
